FAERS Safety Report 9224786 (Version 1)
Quarter: 2013Q2

REPORT INFORMATION
  Report Type: Spontaneous
  Country: CH (occurrence: CH)
  Receive Date: 20130411
  Receipt Date: 20130411
  Transmission Date: 20140414
  Serious: Yes (Other)
  Sender: FDA-Public Use
  Company Number: CH-VERTEX PHARMACEUTICALS INC.-2013-004705

PATIENT
  Age: 61 Year
  Sex: Female

DRUGS (7)
  1. INCIVO [Suspect]
     Indication: HEPATITIS C
     Route: 048
  2. INCIVO [Suspect]
     Indication: HEPATIC CIRRHOSIS
  3. INCIVO [Suspect]
     Indication: CHRONIC HEPATITIS C
  4. PEGINTERFERON ALFA [Suspect]
     Indication: CHRONIC HEPATITIS C
     Dosage: DOSAGE FORM: UNSPECIFIED
     Route: 065
  5. PEGINTERFERON ALFA [Suspect]
     Dosage: DOSAGE FORM: UNSPECIFIED
     Route: 065
  6. RIBAVIRIN [Suspect]
     Indication: HEPATIC CIRRHOSIS
     Dosage: DOSAGE FORM: UNSPECIFIED
     Route: 065
  7. RIBAVIRIN [Suspect]
     Indication: CHRONIC HEPATITIS C
     Dosage: DOSAGE FORM: UNSPECIFIED
     Route: 065

REACTIONS (9)
  - Panniculitis [Recovered/Resolved]
  - Pancreatitis acute [Recovered/Resolved]
  - Skin mass [Recovered/Resolved]
  - Haemolytic anaemia [Unknown]
  - Abdominal discomfort [Recovered/Resolved]
  - Fatigue [Unknown]
  - Diarrhoea [Recovered/Resolved]
  - Vomiting [Recovered/Resolved]
  - Nausea [Recovered/Resolved]
